FAERS Safety Report 19215001 (Version 1)
Quarter: 2021Q2

REPORT INFORMATION
  Report Type: Spontaneous
  Country: NL (occurrence: NL)
  Receive Date: 20210505
  Receipt Date: 20210505
  Transmission Date: 20210717
  Serious: Yes (Other)
  Sender: FDA-Public Use
  Company Number: NL-SUN PHARMACEUTICAL INDUSTRIES LTD-2021RR-294007

PATIENT
  Age: 58 Year
  Sex: Male
  Weight: 87.5 kg

DRUGS (2)
  1. AMLODIPINE TABLET 5MG / BRAND NAME NOT SPECIFIEDAMLODIPINE TABLET... [Suspect]
     Active Substance: AMLODIPINE BESYLATE
     Indication: HYPERTENSION
     Dosage: 5 MILLIGRAM, DAILY, 1X PER DAY 1 PIECE
     Route: 065
     Dates: start: 20210322, end: 20210407
  2. TAMSULOSIN [Suspect]
     Active Substance: TAMSULOSIN
     Indication: MICTURITION DISORDER
     Dosage: 1X PER DAY 1 PIECE ()
     Route: 065
     Dates: start: 20210322, end: 20210407

REACTIONS (1)
  - Tubulointerstitial nephritis [Recovering/Resolving]

NARRATIVE: CASE EVENT DATE: 20210327
